FAERS Safety Report 15368314 (Version 8)
Quarter: 2020Q3

REPORT INFORMATION
  Report Type: Report from Study
  Country: US (occurrence: US)
  Receive Date: 20180910
  Receipt Date: 20200701
  Transmission Date: 20201102
  Serious: Yes (Hospitalization)
  Sender: FDA-Public Use
  Company Number: US-ACTELION-A-US2018-178347

PATIENT
  Age: 61 Year
  Sex: Female

DRUGS (5)
  1. OPSUMIT [Suspect]
     Active Substance: MACITENTAN
     Indication: PULMONARY ARTERIAL HYPERTENSION
     Dosage: 10 MG, QD
     Route: 048
     Dates: start: 20180829
  2. METHOTREXATE. [Suspect]
     Active Substance: METHOTREXATE
     Indication: PRODUCT USED FOR UNKNOWN INDICATION
     Route: 065
  3. ENBREL [Concomitant]
     Active Substance: ETANERCEPT
  4. SILDENAFIL. [Concomitant]
     Active Substance: SILDENAFIL
  5. HUMIRA [Concomitant]
     Active Substance: ADALIMUMAB

REACTIONS (17)
  - Platelet transfusion [Unknown]
  - Wound treatment [Unknown]
  - Respiratory disorder [Unknown]
  - Myelosuppression [Unknown]
  - Transfusion [Unknown]
  - Product dose omission issue [Unknown]
  - Unevaluable investigation [Unknown]
  - Post procedural infection [Unknown]
  - Surgery [Unknown]
  - Hypersensitivity [Unknown]
  - Biopsy bone marrow [Unknown]
  - Respiratory syncytial virus infection [Unknown]
  - Memory impairment [Unknown]
  - Blood count abnormal [Unknown]
  - Spinal operation [Unknown]
  - Postoperative wound infection [Unknown]
  - Wound closure [Unknown]

NARRATIVE: CASE EVENT DATE: 201808
